FAERS Safety Report 10958715 (Version 4)
Quarter: 2015Q2

REPORT INFORMATION
  Report Type: Spontaneous
  Country: US (occurrence: US)
  Receive Date: 20150326
  Receipt Date: 20150622
  Transmission Date: 20150821
  Serious: Yes (Hospitalization)
  Sender: FDA-Public Use
  Company Number: US-BAYER-2015-055048

PATIENT
  Age: 30 Year
  Sex: Female
  Weight: 51 kg

DRUGS (1)
  1. MIRENA [Suspect]
     Active Substance: LEVONORGESTREL
     Indication: CONTRACEPTION
     Dosage: 20 MCG/24HR, CONT
     Route: 015
     Dates: start: 20080423, end: 20131217

REACTIONS (13)
  - Uterine perforation [None]
  - Post procedural discomfort [None]
  - Off label use of device [None]
  - Pain [None]
  - Scar [None]
  - Depression [None]
  - Injury [None]
  - Device misuse [None]
  - Medical device discomfort [None]
  - Medical device pain [None]
  - Menorrhagia [None]
  - Anxiety [None]
  - Menstrual disorder [None]

NARRATIVE: CASE EVENT DATE: 20080423
